FAERS Safety Report 4759850-4 (Version None)
Quarter: 2005Q3

REPORT INFORMATION
  Report Type: 
  Country: None (occurrence: None)
  Receive Date: 20050831
  Receipt Date: 20050816
  Transmission Date: 20060218
  Serious: Yes (Other)
  Sender: FDA-Public Use
  Company Number: USA0508105549

PATIENT
  Age: 63 Year
  Sex: Female
  Weight: 86 kg

DRUGS (10)
  1. HUMULIN 70/30 [Suspect]
     Indication: DIABETES MELLITUS
     Dosage: 70 U DAY
  2. NOVOLOG [Concomitant]
  3. GLUCOPHAGE [Concomitant]
  4. VALSARTAN [Concomitant]
  5. PROTONIX [Concomitant]
  6. LEVOXYL [Concomitant]
  7. NORVASC [Concomitant]
  8. NITROFURANTOIN [Concomitant]
  9. ACTONEL [Concomitant]
  10. CALCIUM GLUCONATE [Concomitant]

REACTIONS (9)
  - BLINDNESS [None]
  - BLOOD GLUCOSE FLUCTUATION [None]
  - CARDIAC DISORDER [None]
  - CYSTITIS [None]
  - GASTROOESOPHAGEAL REFLUX DISEASE [None]
  - OSTEOPOROSIS [None]
  - PHARMACEUTICAL PRODUCT COMPLAINT [None]
  - RETINOPATHY [None]
  - THYROID DISORDER [None]
